FAERS Safety Report 6263923-7 (Version None)
Quarter: 2009Q3

REPORT INFORMATION
  Report Type: 
  Country: None (occurrence: None)
  Receive Date: 20090710
  Receipt Date: 20090701
  Transmission Date: 20100115
  Serious: Yes (Hospitalization)
  Sender: FDA-Public Use
  Company Number: CH-BAYER-200924469GPV

PATIENT
  Age: 80 Year
  Sex: Male

DRUGS (5)
  1. ASPIRIN [Suspect]
     Indication: DRUG USE FOR UNKNOWN INDICATION
     Dosage: TOTAL DAILY DOSE: 100 MG  UNIT DOSE: 100 MG
     Route: 048
  2. COVERSUM [Suspect]
     Indication: DRUG USE FOR UNKNOWN INDICATION
     Route: 048
     Dates: end: 20081211
  3. ENTUMIN [Concomitant]
  4. RISPERDAL [Concomitant]
  5. XATRAL [Concomitant]

REACTIONS (3)
  - ASTHENIA [None]
  - FOOD AVERSION [None]
  - RENAL FAILURE ACUTE [None]
